FAERS Safety Report 8981723 (Version 2)
Quarter: 2013Q1

REPORT INFORMATION
  Report Type: Spontaneous
  Country: US (occurrence: US)
  Receive Date: 20121223
  Receipt Date: 20130130
  Transmission Date: 20140127
  Serious: No
  Sender: FDA-Public Use
  Company Number: US-BAYER-2012-130118

PATIENT
  Sex: Female

DRUGS (1)
  1. DESONATE GEL [Suspect]
     Indication: PAIN
     Dosage: UNK
     Dates: start: 20121205, end: 20121209

REACTIONS (4)
  - Application site pain [None]
  - Application site erythema [None]
  - Pruritus [None]
  - Off label use [None]
